FAERS Safety Report 20054205 (Version 6)
Quarter: 2021Q4

REPORT INFORMATION
  Report Type: Report from Study
  Country: TR (occurrence: None)
  Receive Date: 20211110
  Receipt Date: 20211124
  Transmission Date: 20220303
  Serious: Yes (Hospitalization)
  Sender: FDA-Public Use
  Company Number: TR-Eisai Medical Research-EC-2021-102944

PATIENT
  Age: 65 Year
  Sex: Male
  Weight: 90 kg

DRUGS (14)
  1. LENVATINIB [Suspect]
     Active Substance: LENVATINIB
     Indication: Hepatocellular carcinoma
     Dosage: STARTING AT 12 MG, FLUCTUATED DOSAGE
     Route: 048
     Dates: start: 20210409, end: 20210725
  2. LENVATINIB [Suspect]
     Active Substance: LENVATINIB
     Route: 048
     Dates: start: 20210726, end: 20210815
  3. LENVATINIB [Suspect]
     Active Substance: LENVATINIB
     Route: 048
     Dates: start: 20210817, end: 2021
  4. PEMBROLIZUMAB [Suspect]
     Active Substance: PEMBROLIZUMAB
     Indication: Hepatocellular carcinoma
     Route: 041
     Dates: start: 20210409, end: 20210521
  5. PEMBROLIZUMAB [Suspect]
     Active Substance: PEMBROLIZUMAB
     Route: 041
     Dates: start: 20210701, end: 20210701
  6. PEMBROLIZUMAB [Suspect]
     Active Substance: PEMBROLIZUMAB
     Route: 041
     Dates: start: 20210817
  7. NEBIVOLOL HYDROCHLORIDE [Concomitant]
     Active Substance: NEBIVOLOL HYDROCHLORIDE
     Dates: start: 201101, end: 20210909
  8. GLIFIX PLUS [Concomitant]
     Dates: start: 201101
  9. PROPRANOLOL HYDROCHLORIDE [Concomitant]
     Active Substance: PROPRANOLOL HYDROCHLORIDE
     Dates: start: 201801
  10. METOPROLOL [Concomitant]
     Active Substance: METOPROLOL
     Dates: start: 201801, end: 20210909
  11. PANOCER [Concomitant]
     Dates: start: 201903
  12. LERCANIDIPINE HYDROCHLORIDE [Concomitant]
     Active Substance: LERCANIDIPINE HYDROCHLORIDE
     Dates: start: 20210422
  13. FLURBIPROFEN [Concomitant]
     Active Substance: FLURBIPROFEN
     Dosage: RINSE
     Dates: start: 20210517
  14. NYSTATIN [Concomitant]
     Active Substance: NYSTATIN
     Dosage: RINSE
     Dates: start: 20210517

REACTIONS (1)
  - Hepatic cirrhosis [Recovering/Resolving]

NARRATIVE: CASE EVENT DATE: 20210816
